FAERS Safety Report 6533994-9 (Version None)
Quarter: 2010Q1

REPORT INFORMATION
  Report Type: 
  Country: None (occurrence: None)
  Receive Date: 20100112
  Receipt Date: 20100105
  Transmission Date: 20100710
  Serious: Yes (Hospitalization)
  Sender: FDA-Public Use
  Company Number: US-ELI_LILLY_AND_COMPANY-US201001000469

PATIENT
  Sex: Female
  Weight: 104.76 kg

DRUGS (7)
  1. BYETTA [Suspect]
     Indication: TYPE 2 DIABETES MELLITUS
     Dosage: 5 UG, 2/D
     Route: 058
     Dates: start: 20020101
  2. BYETTA [Suspect]
     Dosage: 10 UG, 2/D
     Route: 058
  3. GLYBURIDE AND METFORMIN HCL [Concomitant]
     Dosage: UNK, 2/D
     Route: 048
  4. DESIPRAMINE [Concomitant]
     Indication: BIPOLAR DISORDER
     Dosage: 25 MG, EACH EVENING
     Route: 048
  5. DEPAKOTE [Concomitant]
     Indication: BIPOLAR DISORDER
     Dosage: 500 MG, DAILY (1/D)
     Route: 048
  6. LORAZEPAM [Concomitant]
     Indication: ANXIETY
     Dosage: 2 MG, EACH EVENING
     Route: 048
  7. LEVOTHYROXINE SODIUM [Concomitant]
     Indication: THYROID DISORDER
     Dosage: 112 UG, DAILY (1/D)
     Route: 048

REACTIONS (12)
  - ABASIA [None]
  - CONSTIPATION [None]
  - DECREASED APPETITE [None]
  - DRUG INEFFECTIVE [None]
  - GLYCOSYLATED HAEMOGLOBIN INCREASED [None]
  - HERNIA [None]
  - INFLAMMATORY BOWEL DISEASE [None]
  - NAUSEA [None]
  - PULMONARY THROMBOSIS [None]
  - RENAL DISORDER [None]
  - WEIGHT FLUCTUATION [None]
  - WRONG TECHNIQUE IN DRUG USAGE PROCESS [None]
